FAERS Safety Report 8840892 (Version 1)
Quarter: 2012Q4

REPORT INFORMATION
  Report Type: 
  Country: CZ (occurrence: CZ)
  Receive Date: 20121015
  Receipt Date: 20121015
  Transmission Date: 20130627
  Serious: Yes (Death, Other)
  Sender: FDA-Public Use
  Company Number: CZ-ROCHE-551958

PATIENT

DRUGS (5)
  1. MYCOPHENOLATE MOFETIL [Suspect]
     Indication: RENAL TRANSPLANT
     Dosage: UP TO 14 DAYS
     Route: 048
  2. MYCOPHENOLATE MOFETIL [Suspect]
     Route: 048
  3. TACROLIMUS [Suspect]
     Indication: RENAL TRANSPLANT
     Route: 065
  4. METHYLPREDNISOLONE [Suspect]
     Indication: PRODUCT USED FOR UNKNOWN INDICATION
     Dosage: AS AN INTRAVENOUS BOLUS ON DAY 1
     Route: 040
  5. PREDNISOLONE [Suspect]
     Indication: PRODUCT USED FOR UNKNOWN INDICATION
     Dosage: 20 MG ON DAYS 2-14, 15 MG ON DAYS 15-28, 10 MG ON DAYS 29-42, AND 5 MG UNTIL THE END OF THE STUDY.
     Route: 065

REACTIONS (5)
  - Breast cancer [Fatal]
  - Malignant melanoma [Fatal]
  - Lung neoplasm malignant [Fatal]
  - Cytomegalovirus infection [Unknown]
  - Graft loss [Unknown]
